FAERS Safety Report 5559967-0 (Version None)
Quarter: 2007Q4

REPORT INFORMATION
  Report Type: 
  Country: None (occurrence: None)
  Receive Date: 20071214
  Receipt Date: 20071021
  Transmission Date: 20080405
  Serious: No
  Sender: FDA-Public Use
  Company Number: US-ABBOTT-07P-163-0421952-00

PATIENT
  Sex: Female

DRUGS (2)
  1. HUMIRA [Suspect]
     Indication: RHEUMATOID ARTHRITIS
     Route: 058
     Dates: start: 20070601
  2. HUMIRA [Suspect]

REACTIONS (7)
  - ARTHRALGIA [None]
  - ASTHENIA [None]
  - IMPAIRED HEALING [None]
  - INFLUENZA LIKE ILLNESS [None]
  - LOCALISED OEDEMA [None]
  - PHARYNGOLARYNGEAL PAIN [None]
  - SKIN DISCOLOURATION [None]
